FAERS Safety Report 14536775 (Version 1)
Quarter: 2018Q1

REPORT INFORMATION
  Report Type: Spontaneous
  Country: US (occurrence: US)
  Receive Date: 20180215
  Receipt Date: 20180215
  Transmission Date: 20180509
  Serious: Yes (Hospitalization)
  Sender: FDA-Public Use
  Company Number: None

PATIENT
  Age: 59 Year
  Sex: Male
  Weight: 100.5 kg

DRUGS (9)
  1. HUMALOG [Suspect]
     Active Substance: INSULIN LISPRO
     Indication: DIABETES MELLITUS
     Dosage: SSI TID SQ
     Route: 058
  2. ECOTRIN [Concomitant]
     Active Substance: ASPIRIN
  3. LIPITOR [Concomitant]
     Active Substance: ATORVASTATIN CALCIUM
  4. CA ACETATE [Concomitant]
  5. HUMULIN N [Suspect]
     Active Substance: INSULIN HUMAN
     Indication: DIABETES MELLITUS
     Dosage: 35 UNITS DAILY SQ
     Route: 058
  6. PROVENTIL [Concomitant]
     Active Substance: ALBUTEROL
  7. ALBUTEROL. [Concomitant]
     Active Substance: ALBUTEROL
  8. BECLOMETHASONE [Concomitant]
     Active Substance: BECLOMETHASONE
  9. CLONIDINE. [Concomitant]
     Active Substance: CLONIDINE

REACTIONS (4)
  - Hepatic mass [None]
  - Hypoglycaemia [None]
  - Therapy change [None]
  - Hepatocellular carcinoma [None]

NARRATIVE: CASE EVENT DATE: 20160514
